FAERS Safety Report 24855828 (Version 1)
Quarter: 2025Q1

REPORT INFORMATION
  Report Type: Spontaneous
  Country: US (occurrence: US)
  Receive Date: 20250117
  Receipt Date: 20250117
  Transmission Date: 20250408
  Serious: Yes (Hospitalization)
  Sender: JOHNSON AND JOHNSON
  Company Number: US-VIIV HEALTHCARE-US2025AMR002947

PATIENT
  Age: 54 Year
  Sex: Female

DRUGS (2)
  1. RILPIVIRINE [Suspect]
     Active Substance: RILPIVIRINE
     Indication: HIV infection
     Dosage: UNK UNK, MO (600MG/900MG (2 INJ) ONCE MONTHLY ON MONTH 1 + 2, THEN EVERY 2 MONTHS THEREAFTER)
     Route: 030
  2. CABOTEGRAVIR [Suspect]
     Active Substance: CABOTEGRAVIR
     Dosage: UNK UNK, MO (600MG/900MG (2 INJ) ONCE MONTHLY ON MONTH 1 + 2, THEN EVERY 2 MONTHS THEREAFTER)

REACTIONS (2)
  - Illness [Not Recovered/Not Resolved]
  - Product dose omission issue [Unknown]
